FAERS Safety Report 7771646-8 (Version None)
Quarter: 2011Q3

REPORT INFORMATION
  Report Type: 
  Country: None (occurrence: None)
  Receive Date: 20110922
  Receipt Date: 20110413
  Transmission Date: 20111222
  Serious: No
  Sender: FDA-Public Use
  Company Number: US-ASTRAZENECA-2009UW17573

PATIENT
  Age: 41 Year
  Sex: Female
  Weight: 104.3 kg

DRUGS (12)
  1. HYDROXYZINE PAM [Concomitant]
     Dates: start: 20080703
  2. AMOXICILLIN [Concomitant]
     Dates: start: 20080430
  3. SEROQUEL [Suspect]
     Dosage: 200 MG  TO 400 MG DISPENSED
     Route: 048
     Dates: start: 20080605
  4. CLONAZEPAM [Concomitant]
     Dates: start: 20080605
  5. SIMVASTATIN [Concomitant]
     Dates: start: 20080910
  6. HYDROCODONE BITARTRATE AND ACETAMINOPHEN [Concomitant]
     Dosage: 5-500
     Dates: start: 20080430
  7. CYCLOPHOSPHAMIDE [Concomitant]
     Dates: start: 20081112
  8. SEROQUEL [Suspect]
     Indication: SCHIZOPHRENIA
     Route: 048
     Dates: start: 20060101
  9. NAPROXEN SODIUM [Concomitant]
     Dates: start: 20080910
  10. LEXAPRO [Concomitant]
     Dates: start: 20080605
  11. TRICOR [Concomitant]
     Dates: start: 20080910
  12. CYMBALTA [Concomitant]

REACTIONS (2)
  - OBESITY [None]
  - TYPE 2 DIABETES MELLITUS [None]
